FAERS Safety Report 4479718-0 (Version None)
Quarter: 2004Q3

REPORT INFORMATION
  Report Type: 
  Country: None (occurrence: None)
  Receive Date: 20040923
  Receipt Date: 20040706
  Transmission Date: 20050211
  Serious: No
  Sender: FDA-Public Use
  Company Number: USA040260211

PATIENT
  Age: 78 Year
  Sex: Female

DRUGS (4)
  1. FORTEO [Suspect]
     Indication: OSTEOPOROSIS
     Dosage: 20 UG DAY
     Dates: start: 20040123
  2. BEXTRA [Concomitant]
  3. PLAQUENIL [Concomitant]
  4. ASPIRIN [Concomitant]

REACTIONS (6)
  - DIZZINESS [None]
  - FEELING HOT [None]
  - FLUSHING [None]
  - HYPERHIDROSIS [None]
  - INJECTION SITE ERYTHEMA [None]
  - RASH MACULAR [None]
